FAERS Safety Report 21233643 (Version 3)
Quarter: 2022Q3

REPORT INFORMATION
  Report Type: Spontaneous
  Country: US (occurrence: US)
  Receive Date: 20220819
  Receipt Date: 20220902
  Transmission Date: 20221027
  Serious: Yes (Other)
  Sender: FDA-Public Use
  Company Number: US-BAYER-2022A116126

PATIENT
  Age: 36 Year
  Sex: Male

DRUGS (3)
  1. JIVI [Suspect]
     Active Substance: DAMOCTOCOG ALFA PEGOL
     Dosage: 3000 U, PRN FOR BLEEDING
     Route: 042
  2. JIVI [Suspect]
     Active Substance: DAMOCTOCOG ALFA PEGOL
     Dosage: 1 DF, ONCE (PRECAUTION PRIOR THE DENTAL APPOINTEMENT)
     Route: 042
     Dates: start: 20220812, end: 20220812
  3. JIVI [Suspect]
     Active Substance: DAMOCTOCOG ALFA PEGOL
     Dosage: 1 DF, FOR THE RIGHT SHOULDER BLEED TREATMENT

REACTIONS (2)
  - Haemarthrosis [Recovering/Resolving]
  - Oropharyngeal pain [None]

NARRATIVE: CASE EVENT DATE: 20220813
